FAERS Safety Report 9304467 (Version 2)
Quarter: 2013Q2

REPORT INFORMATION
  Report Type: Spontaneous
  Country: JP (occurrence: JP)
  Receive Date: 20130523
  Receipt Date: 20130606
  Transmission Date: 20140414
  Serious: Yes (Other)
  Sender: FDA-Public Use
  Company Number: JP-BRISTOL-MYERS SQUIBB COMPANY-18914697

PATIENT
  Age: 63 Year
  Sex: Female

DRUGS (7)
  1. METGLUCO [Suspect]
     Indication: DIABETES MELLITUS
     Dosage: ON 24FEB12-04JAN13:500MG:316 DAYS?05JAN13-9JAN13:1500MG:2 DAYS
     Route: 048
     Dates: start: 20120224, end: 20130109
  2. BAYASPIRIN [Concomitant]
     Indication: CEREBRAL INFARCTION
     Route: 048
     Dates: start: 20091219
  3. ISOSORBIDE DINITRATE [Concomitant]
     Indication: ANGINA PECTORIS
     Route: 048
     Dates: start: 20100109
  4. AMLODIPINE BESYLATE [Concomitant]
     Indication: HYPERTENSION
     Route: 048
     Dates: start: 20100109
  5. CRESTOR [Concomitant]
     Indication: HYPERLIPIDAEMIA
     Route: 048
     Dates: start: 20100327
  6. ACONITINE [Concomitant]
     Indication: PERIPHERAL VASCULAR DISORDER
     Route: 048
     Dates: start: 20110205
  7. ALOGLIPTIN BENZOATE [Concomitant]
     Indication: DIABETES MELLITUS
     Route: 048
     Dates: start: 20120803

REACTIONS (1)
  - Rhabdomyolysis [Recovered/Resolved]
